FAERS Safety Report 4483475-1 (Version None)
Quarter: 2004Q4

REPORT INFORMATION
  Report Type: 
  Country: None (occurrence: None)
  Receive Date: 20041020
  Receipt Date: 20041004
  Transmission Date: 20050328
  Serious: Yes (Death)
  Sender: FDA-Public Use
  Company Number: US013994

PATIENT
  Age: 44 Year
  Sex: 0

DRUGS (2)
  1. FENTANYL [Suspect]
  2. CLONAZEPAM [Suspect]

REACTIONS (1)
  - DRUG ABUSER [None]
